FAERS Safety Report 9511440 (Version 1)
Quarter: 2013Q3

REPORT INFORMATION
  Report Type: Spontaneous
  Country: IT (occurrence: IT)
  Receive Date: 20130910
  Receipt Date: 20130910
  Transmission Date: 20140515
  Serious: Yes (Hospitalization)
  Sender: FDA-Public Use
  Company Number: IT-BRISTOL-MYERS SQUIBB COMPANY-19245737

PATIENT
  Age: 80 Year
  Sex: Female

DRUGS (1)
  1. COUMADIN TABS 5 MG [Suspect]
     Indication: THROMBOSIS PROPHYLAXIS
     Dosage: 1DF:1 UNITS?25-AUG-2013
     Route: 048
     Dates: start: 20130101

REACTIONS (3)
  - Haematuria [Unknown]
  - Anxiety [Unknown]
  - Overdose [Unknown]
